FAERS Safety Report 9414264 (Version 5)
Quarter: 2014Q1

REPORT INFORMATION
  Report Type: Report from Study
  Country: CO (occurrence: CO)
  Receive Date: 20130723
  Receipt Date: 20140129
  Transmission Date: 20141002
  Serious: Yes (Hospitalization, Other)
  Sender: FDA-Public Use
  Company Number: CO-ROCHE-1249235

PATIENT
  Age: 53 Year
  Sex: Male
  Weight: 100 kg

DRUGS (6)
  1. RANIBIZUMAB [Suspect]
     Indication: EYE HAEMORRHAGE
     Route: 050
     Dates: start: 20130415
  2. RANIBIZUMAB [Suspect]
     Route: 050
     Dates: start: 20130627
  3. RANIBIZUMAB [Suspect]
     Dosage: RESTARTED
     Route: 050
  4. INSULIN [Concomitant]
  5. LOSARTAN POTASSIUM [Concomitant]
  6. FOLIC ACID [Concomitant]

REACTIONS (6)
  - Blood pressure abnormal [Recovering/Resolving]
  - Diabetes mellitus [Recovering/Resolving]
  - Swelling [Recovering/Resolving]
  - Lung infection [Recovered/Resolved]
  - Device related infection [Recovered/Resolved]
  - Haemoglobin decreased [Recovering/Resolving]
